FAERS Safety Report 7068876-X (Version None)
Quarter: 2010Q4

REPORT INFORMATION
  Report Type: 
  Country: None (occurrence: None)
  Receive Date: 20101028
  Receipt Date: 20101021
  Transmission Date: 20110411
  Serious: Yes (Death)
  Sender: FDA-Public Use
  Company Number: US-GILEAD-2010-0032337

PATIENT
  Sex: Female
  Weight: 56.75 kg

DRUGS (5)
  1. LETAIRIS [Suspect]
     Indication: PULMONARY ARTERIAL HYPERTENSION
     Route: 048
     Dates: start: 20100831, end: 20100929
  2. REVATIO [Concomitant]
  3. LASIX [Concomitant]
  4. SYNTHROID [Concomitant]
  5. POTASSIUM CHLORIDE [Concomitant]

REACTIONS (4)
  - COR PULMONALE [None]
  - PULMONARY ARTERIAL HYPERTENSION [None]
  - RAYNAUD'S PHENOMENON [None]
  - SYSTEMIC SCLEROSIS [None]
